FAERS Safety Report 18932191 (Version 2)
Quarter: 2024Q2

REPORT INFORMATION
  Report Type: Spontaneous
  Country: NL (occurrence: NL)
  Receive Date: 20210224
  Receipt Date: 20240426
  Transmission Date: 20240717
  Serious: Yes (Other)
  Sender: FDA-Public Use
  Company Number: NL-CELLTRION INC.-2021NL002132

PATIENT

DRUGS (7)
  1. INFLIXIMAB [Suspect]
     Active Substance: INFLIXIMAB
     Indication: Crohn^s disease
     Dosage: 400 MILLIGRAM, EVERY 8 WEEKS
     Dates: start: 202005
  2. CARBASPIRIN CALCIUM [Concomitant]
     Active Substance: CARBASPIRIN CALCIUM
     Dosage: BRUISTABLET, 100 MG (MILLIGRAM)
  3. METHOTREXATE [Concomitant]
     Active Substance: METHOTREXATE
     Dosage: TABLET 15 MG/WEEK
  4. FUROSEMIDE [Concomitant]
     Active Substance: FUROSEMIDE
     Dosage: TABLET, 20 MILLIGRAM
  5. PANTOPRAZOLE [Concomitant]
     Active Substance: PANTOPRAZOLE
     Dosage: 40 MILLIGRAM, TABLET
  6. FOLIC ACID [Concomitant]
     Active Substance: FOLIC ACID
  7. AMITRIPTYLINE HYDROCHLORIDE [Concomitant]
     Active Substance: AMITRIPTYLINE HYDROCHLORIDE
     Dosage: TABLET, 10 MILLIGRAM

REACTIONS (2)
  - Factor VIII deficiency [Recovering/Resolving]
  - Overdose [Unknown]
